FAERS Safety Report 5531722-7 (Version None)
Quarter: 2007Q4

REPORT INFORMATION
  Report Type: 
  Country: None (occurrence: None)
  Receive Date: 20071128
  Receipt Date: 20071112
  Transmission Date: 20080405
  Serious: Yes (Hospitalization)
  Sender: FDA-Public Use
  Company Number: 2007US001757

PATIENT
  Age: 2 Year
  Sex: Female

DRUGS (2)
  1. PROGRAF [Suspect]
     Indication: LIVER TRANSPLANT
  2. MYCOPHENOLATE MOFETIL [Concomitant]
     Indication: LIVER TRANSPLANT

REACTIONS (5)
  - ANOREXIA [None]
  - COMPLICATIONS OF TRANSPLANTED LIVER [None]
  - DIARRHOEA [None]
  - HAEMOLYTIC ANAEMIA [None]
  - LIVER TRANSPLANT REJECTION [None]
